FAERS Safety Report 10545086 (Version 4)
Quarter: 2022Q1

REPORT INFORMATION
  Report Type: Spontaneous
  Country: US (occurrence: US)
  Receive Date: 20141027
  Receipt Date: 20220301
  Transmission Date: 20220423
  Serious: No
  Sender: FDA-Public Use
  Company Number: US-PFIZER INC-2014295261

PATIENT
  Age: 72 Year
  Sex: Female
  Weight: 72.57 kg

DRUGS (2)
  1. ESTRING [Suspect]
     Active Substance: ESTRADIOL
     Indication: Vulvovaginal dryness
     Dosage: 2 MG, UNK
     Dates: start: 2008
  2. ESTRING [Suspect]
     Active Substance: ESTRADIOL
     Indication: Urinary tract disorder

REACTIONS (2)
  - Drug ineffective [Recovered/Resolved]
  - Fungal infection [Recovered/Resolved]

NARRATIVE: CASE EVENT DATE: 20140901
